FAERS Safety Report 4371429-5 (Version None)
Quarter: 2004Q2

REPORT INFORMATION
  Report Type: 
  Country: None (occurrence: None)
  Receive Date: 20040604
  Receipt Date: 20040524
  Transmission Date: 20050107
  Serious: Yes (Other)
  Sender: FDA-Public Use
  Company Number: 2004-DE-03037GD

PATIENT
  Age: 53 Year
  Sex: Male

DRUGS (2)
  1. DIPYRONE TAB [Suspect]
     Indication: PHANTOM PAIN
     Dosage: PO
     Route: 048
  2. MORPHINE [Suspect]
     Indication: PHANTOM PAIN
     Dosage: PO
     Route: 048

REACTIONS (1)
  - DRUG EFFECT DECREASED [None]
